FAERS Safety Report 9908546 (Version 1)
Quarter: 2014Q1

REPORT INFORMATION
  Report Type: Spontaneous
  Country: US (occurrence: None)
  Receive Date: 20140211
  Receipt Date: 20140211
  Transmission Date: 20141002
  Serious: Yes (Hospitalization)
  Sender: FDA-Public Use
  Company Number: IPC201401-000071

PATIENT
  Age: 73 Year
  Sex: Male

DRUGS (5)
  1. ALLOPURINOL [Suspect]
     Indication: HYPERURICAEMIA
  2. ASPIRIN (ASPIRIN) (ASPIRIN) [Concomitant]
  3. ATENOLOL (ATENOLOL) (ATENOLOL) [Concomitant]
  4. SIMVASTATIN (SIMVASTATIN) (SIMVASTATIN) [Concomitant]
  5. BEZAFIBRATE (BEZAFIBRATE) (BEZAFIBRATE) [Concomitant]

REACTIONS (7)
  - Drug reaction with eosinophilia and systemic symptoms [None]
  - Anxiety [None]
  - Blood pressure systolic increased [None]
  - Lung infiltration [None]
  - Atelectasis [None]
  - Pneumonia [None]
  - Confusional state [None]
